FAERS Safety Report 4833228-7 (Version None)
Quarter: 2005Q4

REPORT INFORMATION
  Report Type: 
  Country: None (occurrence: None)
  Receive Date: 20051117
  Receipt Date: 20051108
  Transmission Date: 20060501
  Serious: Yes (Other)
  Sender: FDA-Public Use
  Company Number: FR_051107466

PATIENT
  Age: 58 Year
  Sex: Female

DRUGS (13)
  1. FORTEO [Suspect]
     Indication: OSTEOPOROSIS
     Dosage: 20 UG DAY
     Dates: start: 20051102, end: 20051108
  2. PREVISCAN (FLUINDIONE0 [Concomitant]
  3. FUROSEMIDE [Concomitant]
  4. ALDACTONE [Concomitant]
  5. DIGOXIN [Concomitant]
  6. HYDROCORTISONE [Concomitant]
  7. DILTIAZEM HCL [Concomitant]
  8. LIPANTHYL (FENOFIBRATE) [Concomitant]
  9. MORPHINE SULFATE [Concomitant]
  10. CACIT D3 [Concomitant]
  11. ZOLPIDEM TARTRATE [Concomitant]
  12. VENTOLINE  /00139501/(SALBUTAMOL) [Concomitant]
  13. MOTILIUM (DOMPERIDONE MALEATE) [Concomitant]

REACTIONS (2)
  - INTERNATIONAL NORMALISED RATIO INCREASED [None]
  - PROTHROMBIN LEVEL DECREASED [None]
